FAERS Safety Report 5038840-0 (Version None)
Quarter: 2006Q2

REPORT INFORMATION
  Report Type: 
  Country: None (occurrence: None)
  Receive Date: 20060629
  Receipt Date: 20060621
  Transmission Date: 20061013
  Serious: Yes (Other)
  Sender: FDA-Public Use
  Company Number: 2006AC01190

PATIENT
  Age: 77 Year
  Sex: Male

DRUGS (5)
  1. OMEPRAZOLE [Suspect]
     Indication: DYSPEPSIA
     Dosage: TAKEN FOR 4 WEEKS AT TIME OF DIAGNOSIS.
  2. ASPIRIN [Concomitant]
  3. FELODIPINE [Concomitant]
  4. IRBESARTAN [Concomitant]
  5. SERTRALINE [Concomitant]

REACTIONS (18)
  - ANAEMIA [None]
  - BIOPSY SITE UNSPECIFIED ABNORMAL [None]
  - CONFUSIONAL STATE [None]
  - DRUG HYPERSENSITIVITY [None]
  - GLOMERULAR FILTRATION RATE DECREASED [None]
  - HAEMATURIA [None]
  - IMMUNE SYSTEM DISORDER [None]
  - LETHARGY [None]
  - LEUKOCYTOSIS [None]
  - LEUKOCYTURIA [None]
  - MALAISE [None]
  - NAUSEA [None]
  - NEPHRITIS INTERSTITIAL [None]
  - PROTEINURIA [None]
  - PYREXIA [None]
  - PYURIA [None]
  - RED BLOOD CELL SEDIMENTATION RATE INCREASED [None]
  - RENAL FAILURE ACUTE [None]
